FAERS Safety Report 7328897-6 (Version None)
Quarter: 2011Q1

REPORT INFORMATION
  Report Type: 
  Country: None (occurrence: None)
  Receive Date: 20110225
  Receipt Date: 20110225
  Transmission Date: 20110831
  Serious: Yes (Hospitalization)
  Sender: FDA-Public Use
  Company Number: None

PATIENT
  Age: 65 Year
  Sex: Female
  Weight: 52.1637 kg

DRUGS (1)
  1. GADOLINIUM [Suspect]
     Dosage: IV
     Route: 042
     Dates: start: 20070401, end: 20070402

REACTIONS (2)
  - TREMOR [None]
  - FEELING ABNORMAL [None]
